FAERS Safety Report 8073480-0 (Version None)
Quarter: 2012Q1

REPORT INFORMATION
  Report Type: 
  Country: None (occurrence: None)
  Receive Date: 20120126
  Receipt Date: 20120126
  Transmission Date: 20120608
  Serious: Yes (Hospitalization)
  Sender: FDA-Public Use
  Company Number: None

PATIENT
  Age: 32 Year
  Sex: Male
  Weight: 92.7 kg

DRUGS (1)
  1. TRAMADOL HCL [Suspect]
     Indication: NECK PAIN
     Dosage: 50.0 MG
     Route: 048

REACTIONS (4)
  - ROAD TRAFFIC ACCIDENT [None]
  - JOINT DISLOCATION [None]
  - CONVULSION [None]
  - ANKLE FRACTURE [None]
